FAERS Safety Report 4437974-9 (Version None)
Quarter: 2004Q3

REPORT INFORMATION
  Report Type: 
  Country: None (occurrence: None)
  Receive Date: 20040831
  Receipt Date: 20040621
  Transmission Date: 20050211
  Serious: Yes (Hospitalization)
  Sender: FDA-Public Use
  Company Number: US-ROCHE-371663

PATIENT
  Age: 36 Year
  Sex: Male

DRUGS (4)
  1. FUZEON [Suspect]
     Indication: HIV INFECTION
     Route: 065
     Dates: start: 20030917
  2. INSULIN [Concomitant]
     Route: 065
  3. NORVIR [Concomitant]
     Route: 065
  4. VIREAD [Concomitant]

REACTIONS (6)
  - ACUTE RESPIRATORY DISTRESS SYNDROME [None]
  - CHEST PAIN [None]
  - CHEST WALL PAIN [None]
  - COUGH [None]
  - PNEUMONIA [None]
  - PYREXIA [None]
